APPROVED DRUG PRODUCT: DIAZEPAM
Active Ingredient: DIAZEPAM
Strength: 5MG
Dosage Form/Route: TABLET;ORAL
Application: A070361 | Product #001
Applicant: IVAX PHARMACEUTICALS INC SUB TEVA PHARMACEUTICALS USA
Approved: Sep 4, 1985 | RLD: No | RS: No | Type: DISCN